FAERS Safety Report 25818499 (Version 2)
Quarter: 2025Q3

REPORT INFORMATION
  Report Type: Spontaneous
  Country: US (occurrence: US)
  Receive Date: 20250918
  Receipt Date: 20250925
  Transmission Date: 20251020
  Serious: Yes (Life-Threatening, Other)
  Sender: PFIZER
  Company Number: US-MLMSERVICE-20250908-PI641184-00175-1

PATIENT
  Age: 68 Year
  Sex: Female

DRUGS (1)
  1. HEPARIN SODIUM [Suspect]
     Active Substance: HEPARIN SODIUM

REACTIONS (3)
  - Respiratory distress [Recovered/Resolved]
  - Pharyngeal haematoma [Recovered/Resolved]
  - Tracheal stenosis [Recovered/Resolved]
